FAERS Safety Report 10521757 (Version 3)
Quarter: 2014Q4

REPORT INFORMATION
  Report Type: Spontaneous
  Country: JP (occurrence: None)
  Receive Date: 20141014
  Receipt Date: 20141105
  Transmission Date: 20150528
  Serious: Yes (Hospitalization)
  Sender: FDA-Public Use
  Company Number: JP-017292

PATIENT
  Age: 77 Year
  Sex: Male
  Weight: 56 kg

DRUGS (6)
  1. CILOSTAZOL. [Concomitant]
     Active Substance: CILOSTAZOL
  2. DEGARELIX (GONAX) (120MG, 80MG) [Suspect]
     Active Substance: DEGARELIX
     Dosage: 240 MG, 1X/4 WEEKS SUBCUTANEOUS?
     Route: 058
     Dates: start: 20140725, end: 20140725
  3. AMLODIPINE [Concomitant]
     Active Substance: AMLODIPINE BESYLATE
  4. DEGARELIX (GONAX) (120MG, 80MG) [Suspect]
     Active Substance: DEGARELIX
     Indication: PROSTATE CANCER
     Dosage: 240 MG, 1X/4 WEEKS SUBCUTANEOUS?
     Route: 058
     Dates: start: 20140725, end: 20140725
  5. CASODEX [Concomitant]
     Active Substance: BICALUTAMIDE
  6. GASTER [Concomitant]
     Active Substance: FAMOTIDINE

REACTIONS (1)
  - Interstitial lung disease [None]

NARRATIVE: CASE EVENT DATE: 20140923
